FAERS Safety Report 17790979 (Version 1)
Quarter: 2020Q2

REPORT INFORMATION
  Report Type: Spontaneous
  Country: US (occurrence: US)
  Receive Date: 20200514
  Receipt Date: 20200514
  Transmission Date: 20200714
  Serious: No
  Sender: FDA-Public Use
  Company Number: None

PATIENT
  Age: 71 Year
  Sex: Male
  Weight: 80.1 kg

DRUGS (7)
  1. RHINOCORT [Concomitant]
     Active Substance: BUDESONIDE
  2. VITAMIN B12 SUPPLEMENT [Concomitant]
  3. MENS CHEWABLE VITAMINS SUPPLEMENT [Concomitant]
  4. MIRTAZAPINE. [Suspect]
     Active Substance: MIRTAZAPINE
     Indication: INSOMNIA
     Dates: start: 20190307, end: 20200116
  5. VITAMIN D SUPPLEMENT [Concomitant]
     Active Substance: VITAMIN D NOS
  6. MIRTAZAPINE. [Suspect]
     Active Substance: MIRTAZAPINE
     Indication: DEPRESSION
     Dates: start: 20190307, end: 20200116
  7. OMEPRAZOLE. [Concomitant]
     Active Substance: OMEPRAZOLE

REACTIONS (8)
  - Abdominal discomfort [None]
  - Constipation [None]
  - Dry mouth [None]
  - Withdrawal syndrome [None]
  - Nausea [None]
  - Feeling abnormal [None]
  - Anxiety [None]
  - Nightmare [None]

NARRATIVE: CASE EVENT DATE: 20191115
